FAERS Safety Report 8222735-5 (Version None)
Quarter: 2012Q1

REPORT INFORMATION
  Report Type: 
  Country: None (occurrence: None)
  Receive Date: 20120315
  Receipt Date: 20120229
  Transmission Date: 20120608
  Serious: Yes (Hospitalization, Other)
  Sender: FDA-Public Use
  Company Number: AU-1190918

PATIENT
  Sex: Female

DRUGS (2)
  1. DIGOXIN [Concomitant]
  2. MAXIDEX [Suspect]
     Indication: EYE LASER SURGERY
     Dosage: 1 GTT QID, 1 WEEK OPHTHALMIC
     Route: 047
     Dates: start: 20120217

REACTIONS (2)
  - BLOOD PRESSURE INCREASED [None]
  - ATRIAL FIBRILLATION [None]
